FAERS Safety Report 7070026-0 (Version None)
Quarter: 2010Q4

REPORT INFORMATION
  Report Type: 
  Country: None (occurrence: None)
  Receive Date: 20101028
  Receipt Date: 20100809
  Transmission Date: 20110411
  Serious: No
  Sender: FDA-Public Use
  Company Number: US-WYE-H16802210

PATIENT
  Age: 81 Year
  Sex: Female
  Weight: 56.75 kg

DRUGS (6)
  1. ADVIL [Suspect]
     Indication: ANALGESIC THERAPY
     Dosage: 2 LIQUI-GELS DAILY
     Route: 048
  2. ADVIL [Suspect]
     Indication: ARTHRITIS
  3. ATACAND [Concomitant]
  4. LIPITOR [Concomitant]
  5. NORVASC [Concomitant]
  6. SYNTHROID [Concomitant]

REACTIONS (2)
  - FATIGUE [None]
  - FEELING ABNORMAL [None]
